FAERS Safety Report 13049173 (Version 1)
Quarter: 2016Q4

REPORT INFORMATION
  Report Type: Spontaneous
  Country: FR (occurrence: FR)
  Receive Date: 20161221
  Receipt Date: 20161221
  Transmission Date: 20170207
  Serious: Yes (Hospitalization)
  Sender: FDA-Public Use
  Company Number: FR-PFIZER INC-2016587952

PATIENT
  Age: 74 Year
  Sex: Male

DRUGS (13)
  1. INEXIUM [Concomitant]
     Active Substance: ESOMEPRAZOLE
     Dosage: UNK
  2. LIPANTHYL [Concomitant]
     Active Substance: FENOFIBRATE
     Dosage: UNK
  3. LASILIX SPECIAL [Suspect]
     Active Substance: FUROSEMIDE
     Dosage: 250 MG, DAILY (MORNING)
     Route: 048
     Dates: start: 20151106, end: 20160408
  4. TRIATEC [Suspect]
     Active Substance: RAMIPRIL
     Dosage: 7.5 MG, DAILY
     Route: 048
     Dates: start: 20160307, end: 20160408
  5. AMLOR [Concomitant]
     Active Substance: AMLODIPINE BESYLATE
     Dosage: UNK
  6. IMOVANE [Concomitant]
     Active Substance: ZOPICLONE
     Dosage: UNK
  7. LASILIX SPECIAL [Suspect]
     Active Substance: FUROSEMIDE
     Indication: CHRONIC KIDNEY DISEASE
     Dosage: 250 MG, 2X/DAY (MORNING AND EVENING)
     Route: 048
     Dates: start: 20151103
  8. TRIATEC [Suspect]
     Active Substance: RAMIPRIL
     Indication: GLOMERULONEPHROPATHY
     Dosage: 2.5 MG, DAILY (AFTERNOON)
     Route: 048
     Dates: start: 20151103, end: 20151106
  9. TRIATEC [Suspect]
     Active Substance: RAMIPRIL
     Dosage: 2.5 MG, DAILY
     Route: 048
     Dates: start: 20151214
  10. KAYEXALATE [Concomitant]
     Active Substance: SODIUM POLYSTYRENE SULFONATE
     Dosage: 15 G, DAILY
     Dates: start: 20160201
  11. TRIATEC [Suspect]
     Active Substance: RAMIPRIL
     Dosage: 5 MG, DAILY
     Route: 048
     Dates: start: 20160201
  12. CORTANCYL [Concomitant]
     Active Substance: PREDNISONE
     Dosage: UNK
  13. ENDOXAN [Concomitant]
     Active Substance: CYCLOPHOSPHAMIDE
     Dosage: UNK

REACTIONS (5)
  - Diarrhoea [Unknown]
  - Weight decreased [Unknown]
  - Acute kidney injury [Recovered/Resolved]
  - Gastrointestinal perforation [Unknown]
  - Pain [Unknown]

NARRATIVE: CASE EVENT DATE: 20151106
